FAERS Safety Report 6248119-7 (Version None)
Quarter: 2009Q2

REPORT INFORMATION
  Report Type: 
  Country: None (occurrence: None)
  Receive Date: 20090624
  Receipt Date: 20090624
  Transmission Date: 20091009
  Serious: No
  Sender: FDA-Public Use
  Company Number: None

PATIENT
  Age: 10 Year
  Sex: Male
  Weight: 40.8237 kg

DRUGS (3)
  1. PROZAC [Suspect]
  2. SINGULAIR [Suspect]
  3. ADVIL [Suspect]

REACTIONS (5)
  - HYPERSENSITIVITY [None]
  - PRURITUS [None]
  - RASH [None]
  - REACTION TO DRUG EXCIPIENTS [None]
  - SCRATCH [None]
